FAERS Safety Report 5486637-X (Version None)
Quarter: 2007Q4

REPORT INFORMATION
  Report Type: 
  Country: None (occurrence: None)
  Receive Date: 20071016
  Receipt Date: 20071004
  Transmission Date: 20080405
  Serious: Yes (Life-Threatening, Hospitalization)
  Sender: FDA-Public Use
  Company Number: GB-AMGEN-US198847

PATIENT
  Age: 58 Year
  Sex: Female
  Weight: 86 kg

DRUGS (8)
  1. ENBREL [Suspect]
     Indication: RHEUMATOID ARTHRITIS
     Route: 058
     Dates: start: 20031215, end: 20060724
  2. METHOTREXATE [Suspect]
     Route: 048
     Dates: start: 20031101, end: 20060725
  3. FOLIC ACID [Concomitant]
     Route: 048
     Dates: start: 20031101
  4. PROPYLENE GLYCOL [Concomitant]
     Dosage: UNKNOWN
  5. HYDROXYCHLOROQUINE SULFATE [Concomitant]
     Dosage: UNKNOWN
  6. NAPROXEN [Concomitant]
     Dosage: UNKNOWN
  7. PREDNISOLONE [Concomitant]
     Dosage: UNKNOWN
  8. OMEPRAZOLE [Concomitant]
     Indication: DYSPEPSIA
     Dosage: 20MG FREQUENCY UNSPECIFIED
     Route: 048
     Dates: start: 20040101

REACTIONS (4)
  - ARTHRITIS BACTERIAL [None]
  - DEVICE RELATED INFECTION [None]
  - JOINT ARTHROPLASTY [None]
  - STAPHYLOCOCCAL INFECTION [None]
